FAERS Safety Report 5534572-0 (Version None)
Quarter: 2007Q4

REPORT INFORMATION
  Report Type: 
  Country: None (occurrence: None)
  Receive Date: 20071205
  Receipt Date: 20071127
  Transmission Date: 20080405
  Serious: Yes (Life-Threatening)
  Sender: FDA-Public Use
  Company Number: US-ELI_LILLY_AND_COMPANY-US200711000181

PATIENT
  Sex: Female
  Weight: 102.49 kg

DRUGS (6)
  1. CYMBALTA [Suspect]
     Indication: DEPRESSION
     Dosage: 30 MG, UNK
     Dates: start: 20070910, end: 20071030
  2. CYMBALTA [Suspect]
     Dosage: 60 MG, UNK
     Dates: start: 20070924, end: 20071030
  3. WELLBUTRIN [Concomitant]
  4. ZYRTEC [Concomitant]
  5. PREMPRO [Concomitant]
  6. OXYBUTYNIN CHLORIDE [Concomitant]

REACTIONS (5)
  - AMNESIA [None]
  - CONFUSIONAL STATE [None]
  - FAECAL INCONTINENCE [None]
  - ROAD TRAFFIC ACCIDENT [None]
  - URINARY INCONTINENCE [None]
